FAERS Safety Report 23736992 (Version 1)
Quarter: 2024Q2

REPORT INFORMATION
  Report Type: Spontaneous
  Country: FR (occurrence: FR)
  Receive Date: 20240412
  Receipt Date: 20240412
  Transmission Date: 20240716
  Serious: Yes (Life-Threatening)
  Sender: FDA-Public Use
  Company Number: FR-SUN PHARMACEUTICAL INDUSTRIES LTD-2024RR-442068

PATIENT
  Age: 30 Year
  Sex: Male
  Weight: 120 kg

DRUGS (4)
  1. RISPERIDONE [Suspect]
     Active Substance: RISPERIDONE
     Indication: Product used for unknown indication
     Dosage: 5 TABLETS/DAY
     Route: 048
     Dates: start: 2021
  2. COMIRNATY NOS [Concomitant]
     Active Substance: COVID-19 VACCINE
     Indication: COVID-19 immunisation
     Dosage: R1,  IN TOTAL
     Route: 030
     Dates: start: 202201, end: 202201
  3. COMIRNATY NOS [Concomitant]
     Active Substance: COVID-19 VACCINE
     Dosage: D2, IN TOTAL
     Route: 030
     Dates: start: 20210711, end: 20210711
  4. ESCITALOPRAM [Concomitant]
     Active Substance: ESCITALOPRAM OXALATE
     Indication: Product used for unknown indication
     Dosage: UNK
     Route: 065

REACTIONS (1)
  - Deep vein thrombosis [Not Recovered/Not Resolved]

NARRATIVE: CASE EVENT DATE: 20230919
